FAERS Safety Report 18490040 (Version 1)
Quarter: 2020Q4

REPORT INFORMATION
  Report Type: Spontaneous
  Country: DE (occurrence: DE)
  Receive Date: 20201111
  Receipt Date: 20201111
  Transmission Date: 20210114
  Serious: Yes (Life-Threatening, Hospitalization, Other)
  Sender: FDA-Public Use
  Company Number: DE-PFIZER INC-2020437386

PATIENT
  Age: 78 Year
  Sex: Female

DRUGS (15)
  1. MIRTAZAPIN [Concomitant]
     Active Substance: MIRTAZAPINE
     Dosage: 30 MG, 1X/DAY, 0-0-0-1
  2. BISOPROLOL [Concomitant]
     Active Substance: BISOPROLOL
     Dosage: 5 MG, 2X/DAY, 1-0-0-1
  3. NALOXONE/TILIDINE [Concomitant]
     Active Substance: NALOXONE HYDROCHLORIDE\TILIDINE HYDROCHLORIDE
     Dosage: 1 DF, 2X/DAY, 4|50 MG, 1-0-0-1
  4. PANTOPRAZOLE [Concomitant]
     Active Substance: PANTOPRAZOLE
     Dosage: 40 MG, 2X/DAY, 1-0-1-0
  5. REKAWAN [Concomitant]
     Active Substance: POTASSIUM CHLORIDE
     Dosage: 600 MG, 2-2-2-0, RETARD
  6. EDOXABAN [Suspect]
     Active Substance: EDOXABAN TOSYLATE
     Dosage: 60 MG, 1X/DAY, 1-0-0-0
  7. LERCANIDIPINE [Concomitant]
     Active Substance: LERCANIDIPINE
     Dosage: 20 MG, 1X/DAY, 1-0-0-0
  8. LORAZEPAM. [Suspect]
     Active Substance: LORAZEPAM
     Dosage: 0.5 MG, 1X/DAY (0-0-0-1)
  9. TORASEMID [Concomitant]
     Active Substance: TORSEMIDE
     Dosage: 50 MG, 2X/DAY, 1-1-0-0
  10. QUETIAPINE. [Suspect]
     Active Substance: QUETIAPINE
     Dosage: 100 MG, 1X/DAY (0-0-0-1)
  11. LIPROLOG [Concomitant]
     Active Substance: INSULIN LISPRO
     Dosage: UNK, ACCORDING TO SCHEME
  12. COLECALCIFEROL [Concomitant]
     Active Substance: CHOLECALCIFEROL
     Dosage: 1000 IU, 1X/DAY, 1-0-0-0
  13. METAMIZOLE [Concomitant]
     Active Substance: METAMIZOLE
     Dosage: 500 MG, 3X/DAY, 1-1-1-0
  14. PREGABALIN. [Suspect]
     Active Substance: PREGABALIN
     Dosage: 25 MG, 3X/DAY (1-1-1-0)
  15. LEVEMIR [Concomitant]
     Active Substance: INSULIN DETEMIR
     Dosage: 5 IU, 1X/DAY, 0-0-1-0

REACTIONS (12)
  - Condition aggravated [Unknown]
  - Hepatic enzyme abnormal [Unknown]
  - Weight decreased [Unknown]
  - Anaemia [Unknown]
  - Blood creatinine abnormal [Unknown]
  - Fatigue [Unknown]
  - Glomerular filtration rate abnormal [Unknown]
  - Haematochezia [Unknown]
  - General physical health deterioration [Unknown]
  - Haemoglobin abnormal [Unknown]
  - Abdominal distension [Unknown]
  - Pallor [Unknown]

NARRATIVE: CASE EVENT DATE: 20200728
